FAERS Safety Report 14477075 (Version 1)
Quarter: 2018Q1

REPORT INFORMATION
  Report Type: Report from Study
  Country: US (occurrence: US)
  Receive Date: 20180201
  Receipt Date: 20180201
  Transmission Date: 20180509
  Serious: No
  Sender: FDA-Public Use
  Company Number: US-EXELIXIS-CABO-17009928

PATIENT
  Sex: Male

DRUGS (8)
  1. HUMALOG [Concomitant]
     Active Substance: INSULIN LISPRO
  2. ELIQUIS [Concomitant]
     Active Substance: APIXABAN
  3. ULTRAM [Concomitant]
     Active Substance: TRAMADOL HYDROCHLORIDE
  4. LANTUS [Concomitant]
     Active Substance: INSULIN GLARGINE
  5. MOTRIN [Concomitant]
     Active Substance: IBUPROFEN
  6. DEXAMETHASONE. [Concomitant]
     Active Substance: DEXAMETHASONE
  7. TYLENOL [Concomitant]
     Active Substance: ACETAMINOPHEN
  8. CABOMETYX [Suspect]
     Active Substance: CABOZANTINIB S-MALATE
     Indication: RENAL CANCER
     Dosage: 40 MG, QD
     Route: 048
     Dates: start: 20161004

REACTIONS (1)
  - Oral mucosal blistering [Unknown]
